FAERS Safety Report 4895134-1 (Version None)
Quarter: 2006Q1

REPORT INFORMATION
  Report Type: 
  Country: None (occurrence: None)
  Receive Date: 20060125
  Receipt Date: 20060109
  Transmission Date: 20060701
  Serious: Yes (Other)
  Sender: FDA-Public Use
  Company Number: 8013080

PATIENT
  Age: 7 Year
  Sex: Female
  Weight: 32 kg

DRUGS (3)
  1. KEPPRA [Suspect]
     Indication: CONVULSION
  2. EPILIM [Concomitant]
  3. CLONAZEPAM [Concomitant]

REACTIONS (4)
  - ABNORMAL BEHAVIOUR [None]
  - CONDITION AGGRAVATED [None]
  - CONVULSION [None]
  - STATUS EPILEPTICUS [None]
